FAERS Safety Report 7742761 (Version 3)
Quarter: 2013Q4

REPORT INFORMATION
  Report Type: Spontaneous
  Country: US (occurrence: US)
  Receive Date: 20101229
  Receipt Date: 20131119
  Transmission Date: 20140711
  Serious: Yes (Life-Threatening, Other)
  Sender: FDA-Public Use
  Company Number: US-BAYER-2010-008041

PATIENT
  Age: 19 Year
  Sex: Female

DRUGS (8)
  1. YASMIN [Suspect]
     Indication: CONTRACEPTION
     Dosage: UNK
     Dates: start: 20060101, end: 20080621
  2. YAZ [Suspect]
     Indication: CONTRACEPTION
  3. OCELLA [Suspect]
     Indication: CONTRACEPTION
  4. GIANVI [Suspect]
     Indication: CONTRACEPTION
  5. PERCOCET [Concomitant]
     Dosage: UNK
     Dates: start: 20081015
  6. LEXAPRO [Concomitant]
     Dosage: 10 MG, UNK
  7. METFORMIN [Concomitant]
     Dosage: 850 MG, UNK
  8. ADVIL [Concomitant]
     Dosage: UNK

REACTIONS (8)
  - Cholecystectomy [None]
  - Injury [None]
  - Pain [None]
  - Anxiety [None]
  - Anhedonia [None]
  - Fear of disease [None]
  - Biliary dyskinesia [None]
  - Cholecystitis chronic [None]
